FAERS Safety Report 5447866-4 (Version None)
Quarter: 2007Q3

REPORT INFORMATION
  Report Type: 
  Country: None (occurrence: None)
  Receive Date: 20070910
  Receipt Date: 20070830
  Transmission Date: 20080115
  Serious: Yes (Other)
  Sender: FDA-Public Use
  Company Number: US-PFIZER INC-2007040140

PATIENT
  Sex: Female
  Weight: 77.6 kg

DRUGS (21)
  1. LIPITOR [Suspect]
     Indication: CORONARY ARTERY DISEASE
     Route: 048
     Dates: start: 20030101, end: 20060313
  2. METHOTREXATE [Concomitant]
  3. ASACOL [Concomitant]
  4. KLOR-CON [Concomitant]
  5. ISOSORBIDE MN [Concomitant]
  6. SYNTHROID [Concomitant]
  7. NORVASC [Concomitant]
  8. PREDNISONE [Concomitant]
     Dosage: DAILY DOSE:8MG
  9. PAROXETINE HYDROCHLORIDE [Concomitant]
  10. COZAAR [Concomitant]
  11. GLIMEPIRIDE [Concomitant]
  12. TOPROL-XL [Concomitant]
  13. FUROSEMIDE [Concomitant]
  14. PLAVIX [Concomitant]
  15. PRILOSEC [Concomitant]
  16. STOOL SOFTENER [Concomitant]
  17. ASPIRIN [Concomitant]
  18. ANALGESICS [Concomitant]
  19. FOLIC ACID [Concomitant]
  20. VITACAL [Concomitant]
  21. FISH OIL [Concomitant]

REACTIONS (4)
  - ANTINUCLEAR ANTIBODY INCREASED [None]
  - AUTOIMMUNE HEPATITIS [None]
  - LABORATORY TEST ABNORMAL [None]
  - LIVER FUNCTION TEST ABNORMAL [None]
